FAERS Safety Report 6590132-4 (Version None)
Quarter: 2010Q1

REPORT INFORMATION
  Report Type: 
  Country: None (occurrence: None)
  Receive Date: 20100219
  Receipt Date: 20100209
  Transmission Date: 20100710
  Serious: Yes (Other)
  Sender: FDA-Public Use
  Company Number: GB-B.I. PHARMACEUTICALS,INC./RIDGEFIELD-2010-DE-00679GD

PATIENT
  Age: 63 Year
  Sex: Male

DRUGS (4)
  1. PRAMIPEXOLE DIHYDROCHLORIDE [Suspect]
     Indication: PARKINSON'S DISEASE
     Dosage: 2.1 MG
     Route: 048
  2. PRAMIPEXOLE DIHYDROCHLORIDE [Suspect]
     Dosage: 0.36 MG
     Route: 048
  3. SELEGILINE HCL [Suspect]
     Indication: PARKINSON'S DISEASE
     Dosage: 10 MG
  4. LEVODOPA [Suspect]
     Indication: PARKINSON'S DISEASE
     Dosage: 400 MG

REACTIONS (3)
  - DOPAMINE DYSREGULATION SYNDROME [None]
  - GAMBLING [None]
  - INCORRECT DRUG ADMINISTRATION RATE [None]
